FAERS Safety Report 4437888-4 (Version None)
Quarter: 2004Q3

REPORT INFORMATION
  Report Type: 
  Country: None (occurrence: None)
  Receive Date: 20040831
  Receipt Date: 20030929
  Transmission Date: 20050211
  Serious: Yes (Life-Threatening, Hospitalization, Other)
  Sender: FDA-Public Use
  Company Number: US-MERCK-0310USA00124

PATIENT
  Age: 70 Year
  Sex: Female
  Weight: 77 kg

DRUGS (12)
  1. ASPIRIN [Concomitant]
     Indication: CARDIAC MURMUR
     Route: 065
     Dates: start: 19890101, end: 20040511
  2. ASPIRIN [Concomitant]
     Indication: DYSPEPSIA
     Route: 065
     Dates: start: 19890101, end: 20040511
  3. LOTENSIN [Concomitant]
     Indication: BLOOD PRESSURE ABNORMAL
     Route: 048
     Dates: start: 19991001, end: 20010625
  4. ZYRTEC [Concomitant]
     Indication: HYPERSENSITIVITY
     Route: 048
     Dates: start: 20000101
  5. FLONASE [Concomitant]
     Route: 055
     Dates: start: 20000128
  6. HYDRO-CHLOR [Concomitant]
     Indication: HYPERTENSION
     Route: 065
  7. PREDNISONE [Concomitant]
     Route: 048
     Dates: start: 20000622
  8. VIOXX [Suspect]
     Indication: ARTHRALGIA
     Route: 048
     Dates: start: 19991116, end: 20010101
  9. VIOXX [Suspect]
     Route: 048
     Dates: start: 20010129, end: 20010303
  10. VIOXX [Suspect]
     Indication: OSTEOARTHRITIS
     Route: 048
     Dates: start: 19991116, end: 20010101
  11. VIOXX [Suspect]
     Route: 048
     Dates: start: 20010129, end: 20010303
  12. DETROL [Concomitant]
     Route: 048
     Dates: start: 20000116

REACTIONS (44)
  - ACUTE RESPIRATORY FAILURE [None]
  - ANAPHYLACTIC REACTION [None]
  - ANGIONEUROTIC OEDEMA [None]
  - AORTIC ATHEROSCLEROSIS [None]
  - ARRHYTHMIA [None]
  - ASTHENIA [None]
  - ASTHMA [None]
  - BLOOD CHOLESTEROL INCREASED [None]
  - BRONCHITIS [None]
  - CARDIAC DISORDER [None]
  - CARDIOMEGALY [None]
  - CARPAL TUNNEL SYNDROME [None]
  - CEREBROVASCULAR ACCIDENT [None]
  - CHRONIC OBSTRUCTIVE AIRWAYS DISEASE [None]
  - CORONARY ARTERY DISEASE [None]
  - CYTOMEGALOVIRUS COLITIS [None]
  - DEEP VEIN THROMBOSIS [None]
  - DIASTOLIC DYSFUNCTION [None]
  - DISSEMINATED CYTOMEGALOVIRAL INFECTION [None]
  - DRUG INEFFECTIVE [None]
  - DYSPNOEA [None]
  - EMOTIONAL DISTRESS [None]
  - EPISTAXIS [None]
  - FEELING ABNORMAL [None]
  - GASTROINTESTINAL HAEMORRHAGE [None]
  - GASTROOESOPHAGEAL REFLUX DISEASE [None]
  - HEART RATE IRREGULAR [None]
  - HEPATIC ENZYME INCREASED [None]
  - HYPOVENTILATION [None]
  - HYPOXIA [None]
  - ILEUS [None]
  - INJURY [None]
  - INTESTINAL ISCHAEMIA [None]
  - LEUKOCYTOSIS [None]
  - MUSCLE CRAMP [None]
  - MYOPATHY STEROID [None]
  - OSTEOARTHRITIS [None]
  - PNEUMONIA CYTOMEGALOVIRAL [None]
  - PULMONARY OEDEMA [None]
  - RECTAL ULCER [None]
  - RHINITIS ALLERGIC [None]
  - STAPHYLOCOCCAL INFECTION [None]
  - SWELLING FACE [None]
  - SYPHILIS [None]
